FAERS Safety Report 4827831-8 (Version None)
Quarter: 2005Q4

REPORT INFORMATION
  Report Type: 
  Country: None (occurrence: None)
  Receive Date: 20051114
  Receipt Date: 20051114
  Transmission Date: 20060501
  Serious: Yes (Other)
  Sender: FDA-Public Use
  Company Number: None

PATIENT
  Sex: Female
  Weight: 90.7194 kg

DRUGS (2)
  1. KENALOG [Suspect]
     Indication: HYPERSENSITIVITY
     Dosage: 60 MG. INTO FATTY TISSUE ONCE   IM
     Route: 030
     Dates: start: 20051101, end: 20051101
  2. KENALOG [Suspect]
     Indication: POSTNASAL DRIP
     Dosage: 60 MG. INTO FATTY TISSUE ONCE   IM
     Route: 030
     Dates: start: 20051101, end: 20051101

REACTIONS (3)
  - DYSURIA [None]
  - NAUSEA [None]
  - PAIN IN EXTREMITY [None]
